FAERS Safety Report 23315987 (Version 1)
Quarter: 2023Q4

REPORT INFORMATION
  Report Type: Spontaneous
  Country: US (occurrence: US)
  Receive Date: 20231219
  Receipt Date: 20231219
  Transmission Date: 20240109
  Serious: No
  Sender: FDA-Public Use
  Company Number: US-BAUSCH-BL-2023-018921

PATIENT
  Age: 41 Year
  Sex: Male

DRUGS (1)
  1. APRISO [Suspect]
     Active Substance: MESALAMINE
     Indication: Colitis ulcerative
     Route: 065
     Dates: start: 202311

REACTIONS (1)
  - Product residue present [Unknown]

NARRATIVE: CASE EVENT DATE: 20230101
